FAERS Safety Report 6303490-2 (Version None)
Quarter: 2009Q3

REPORT INFORMATION
  Report Type: 
  Country: None (occurrence: None)
  Receive Date: 20090810
  Receipt Date: 20090731
  Transmission Date: 20100115
  Serious: Yes (Life-Threatening, Hospitalization, Congenital Anomaly)
  Sender: FDA-Public Use
  Company Number: FR-TEVA-203654USA

PATIENT
  Sex: Female
  Weight: 0.585 kg

DRUGS (4)
  1. BISELECT [Suspect]
     Route: 064
     Dates: start: 20090101, end: 20090530
  2. TACROLIMUS [Suspect]
     Indication: LIVER TRANSPLANT
     Route: 064
     Dates: start: 20020227, end: 20090530
  3. ACETYLSALICYLIC ACID [Concomitant]
     Indication: DRUG EXPOSURE DURING PREGNANCY
     Route: 064
     Dates: start: 20020101, end: 20090530
  4. BROMAZEPAM [Concomitant]
     Indication: DRUG EXPOSURE DURING PREGNANCY
     Route: 064
     Dates: start: 20090101, end: 20090530

REACTIONS (3)
  - DRUG EXPOSURE DURING PREGNANCY [None]
  - FOETAL GROWTH RETARDATION [None]
  - PREMATURE BABY [None]
